FAERS Safety Report 13373694 (Version 1)
Quarter: 2017Q1

REPORT INFORMATION
  Report Type: Spontaneous
  Country: US (occurrence: US)
  Receive Date: 20170327
  Receipt Date: 20170327
  Transmission Date: 20170429
  Serious: No
  Sender: FDA-Public Use
  Company Number: US-PFIZER INC-2017127687

PATIENT
  Sex: Female
  Weight: 100 kg

DRUGS (1)
  1. VENLAFAXINE HCL [Suspect]
     Active Substance: VENLAFAXINE HYDROCHLORIDE
     Dosage: 150 MG, DAILY

REACTIONS (5)
  - Non-24-hour sleep-wake disorder [Unknown]
  - Depression [Unknown]
  - Anxiety [Unknown]
  - Withdrawal syndrome [Unknown]
  - Lethargy [Unknown]
